FAERS Safety Report 20165661 (Version 1)
Quarter: 2021Q4

REPORT INFORMATION
  Report Type: Spontaneous
  Country: US (occurrence: US)
  Receive Date: 20211209
  Receipt Date: 20211209
  Transmission Date: 20220303
  Serious: Yes (Death, Hospitalization, Other)
  Sender: FDA-Public Use
  Company Number: US-BAYER-2021A261549

PATIENT
  Age: 69 Year
  Sex: Male

DRUGS (2)
  1. ASPIRIN [Suspect]
     Active Substance: ASPIRIN
  2. CLOPIDOGREL [Suspect]
     Active Substance: CLOPIDOGREL BISULFATE

REACTIONS (12)
  - Blood loss anaemia [None]
  - Acute kidney injury [Fatal]
  - Labelled drug-drug interaction medication error [None]
  - Oliguria [None]
  - Melaena [None]
  - Hypotension [None]
  - Asthenia [None]
  - Dehydration [None]
  - Cirrhosis alcoholic [Fatal]
  - Renal failure [None]
  - Hepatorenal syndrome [Fatal]
  - Contraindicated product administered [None]
